FAERS Safety Report 14018654 (Version 2)
Quarter: 2017Q3

REPORT INFORMATION
  Report Type: Spontaneous
  Country: US (occurrence: US)
  Receive Date: 20170928
  Receipt Date: 20170928
  Transmission Date: 20171128
  Serious: No
  Sender: FDA-Public Use
  Company Number: US-CIPLA LTD.-2017US11247

PATIENT

DRUGS (5)
  1. PREDNISONE. [Concomitant]
     Active Substance: PREDNISONE
     Indication: HAEMOLYTIC ANAEMIA
     Dosage: 10 MG, PER DAY
     Route: 065
     Dates: start: 2010
  2. AMLODIPINE [Suspect]
     Active Substance: AMLODIPINE BESYLATE
     Dosage: UNK, CIPLA MANUFACTURED
     Route: 065
     Dates: start: 201701
  3. AMLODIPINE [Suspect]
     Active Substance: AMLODIPINE BESYLATE
     Dosage: UNK, CIPLA MANUFACTURED
     Route: 065
     Dates: start: 20160926
  4. AMLODIPINE [Suspect]
     Active Substance: AMLODIPINE BESYLATE
     Indication: HYPERTENSION
     Dosage: UNK, LUPIN MANUFACTURED
     Route: 065
     Dates: start: 2015
  5. AMLODIPINE [Suspect]
     Active Substance: AMLODIPINE BESYLATE
     Dosage: 10 MG, QD, INVAGEN MANUFACTURED
     Route: 048
     Dates: start: 201612, end: 201701

REACTIONS (3)
  - Rash erythematous [Recovered/Resolved]
  - Pruritus [Recovering/Resolving]
  - Product substitution issue [Unknown]

NARRATIVE: CASE EVENT DATE: 201612
